FAERS Safety Report 11750818 (Version 1)
Quarter: 2015Q4

REPORT INFORMATION
  Report Type: Spontaneous
  Country: US (occurrence: US)
  Receive Date: 20151118
  Receipt Date: 20151118
  Transmission Date: 20160304
  Serious: No
  Sender: FDA-Public Use
  Company Number: US-TRIS PHARMA, INC.-1044378

PATIENT
  Age: 66 Year
  Sex: Female

DRUGS (1)
  1. CHLORPHENIRAMINE + HYDROCODONE [Suspect]
     Active Substance: CHLORPHENIRAMINE HYDROCHLORIDE\HYDROCODONE
     Indication: PAIN MANAGEMENT
     Route: 048
     Dates: start: 20101020, end: 20101201

REACTIONS (7)
  - Drug ineffective [Recovered/Resolved]
  - Nausea [Recovered/Resolved]
  - Drug ineffective for unapproved indication [Recovered/Resolved]
  - Inappropriate schedule of drug administration [Recovered/Resolved]
  - Vomiting [Recovered/Resolved]
  - Product taste abnormal [Recovered/Resolved]
  - Off label use [Recovered/Resolved]

NARRATIVE: CASE EVENT DATE: 20101020
